FAERS Safety Report 6902675-1 (Version None)
Quarter: 2010Q3

REPORT INFORMATION
  Report Type: 
  Country: None (occurrence: None)
  Receive Date: 20100803
  Receipt Date: 20080618
  Transmission Date: 20110219
  Serious: No
  Sender: FDA-Public Use
  Company Number: US-PFIZER INC-2008035980

PATIENT
  Age: 59 Year
  Sex: Female
  Weight: 88.5 kg

DRUGS (4)
  1. LYRICA [Suspect]
     Indication: LUMBAR RADICULOPATHY
     Route: 048
     Dates: start: 20080208, end: 20080208
  2. LYRICA [Suspect]
     Indication: SPINAL OSTEOARTHRITIS
  3. LYRICA [Suspect]
     Indication: PAIN IN EXTREMITY
  4. ARTHROTEC [Suspect]

REACTIONS (1)
  - SWELLING FACE [None]
